FAERS Safety Report 5999208-3 (Version None)
Quarter: 2008Q4

REPORT INFORMATION
  Report Type: 
  Country: None (occurrence: None)
  Receive Date: 20081215
  Receipt Date: 20081021
  Transmission Date: 20090506
  Serious: No
  Sender: FDA-Public Use
  Company Number: US-BAYER-200836681NA

PATIENT
  Age: 31 Year
  Sex: Female
  Weight: 71 kg

DRUGS (1)
  1. MIRENA [Suspect]
     Indication: CONTRACEPTION
     Route: 015
     Dates: start: 20040301, end: 20080902

REACTIONS (11)
  - ABDOMINAL DISTENSION [None]
  - ACNE [None]
  - BACK PAIN [None]
  - DIZZINESS [None]
  - FLUID RETENTION [None]
  - HYPOGLYCAEMIA [None]
  - LYMPHADENOPATHY [None]
  - NASAL CONGESTION [None]
  - RESPIRATORY TRACT CONGESTION [None]
  - SINUS CONGESTION [None]
  - WEIGHT INCREASED [None]
